FAERS Safety Report 13541541 (Version 2)
Quarter: 2017Q2

REPORT INFORMATION
  Report Type: Spontaneous
  Country: US (occurrence: US)
  Receive Date: 20170512
  Receipt Date: 20170602
  Transmission Date: 20170830
  Serious: Yes (Hospitalization)
  Sender: FDA-Public Use
  Company Number: US-SA-2017SA083059

PATIENT
  Age: 57 Year
  Sex: Male

DRUGS (1)
  1. LEMTRADA [Suspect]
     Active Substance: ALEMTUZUMAB
     Route: 041
     Dates: start: 20161031, end: 20161104

REACTIONS (6)
  - Dizziness [Recovering/Resolving]
  - Pancreatitis [Not Recovered/Not Resolved]
  - Gastrointestinal pain [Not Recovered/Not Resolved]
  - Feeding disorder [Not Recovered/Not Resolved]
  - Bone pain [Not Recovered/Not Resolved]
  - CD4 lymphocytes decreased [Recovering/Resolving]

NARRATIVE: CASE EVENT DATE: 2016
